FAERS Safety Report 19043654 (Version 1)
Quarter: 2021Q1

REPORT INFORMATION
  Report Type: Spontaneous
  Country: FR (occurrence: FR)
  Receive Date: 20210323
  Receipt Date: 20210323
  Transmission Date: 20210420
  Serious: Yes (Hospitalization)
  Sender: FDA-Public Use
  Company Number: FR-PFIZER INC-2021282446

PATIENT
  Age: 13 Year
  Sex: Female
  Weight: 47 kg

DRUGS (3)
  1. PARACETAMOL [Suspect]
     Active Substance: ACETAMINOPHEN
     Dosage: UNK
     Route: 048
     Dates: start: 20210221, end: 20210221
  2. ALPRAZOLAM. [Suspect]
     Active Substance: ALPRAZOLAM
     Dosage: 4 DF
     Route: 048
     Dates: start: 20210221, end: 20210221
  3. PAROXETINE. [Suspect]
     Active Substance: PAROXETINE
     Dosage: 10 DF
     Route: 048
     Dates: start: 20210221, end: 20210221

REACTIONS (3)
  - Serotonin syndrome [Recovered/Resolved]
  - Toxicity to various agents [Unknown]
  - Off label use [Unknown]

NARRATIVE: CASE EVENT DATE: 20210221
